FAERS Safety Report 24253341 (Version 1)
Quarter: 2024Q3

REPORT INFORMATION
  Report Type: Spontaneous
  Country: IT (occurrence: IT)
  Receive Date: 20240827
  Receipt Date: 20240827
  Transmission Date: 20241016
  Serious: Yes (Hospitalization)
  Sender: RANBAXY
  Company Number: IT-SUN PHARMACEUTICAL INDUSTRIES LTD-2024RR-464244

PATIENT
  Age: 79 Year
  Sex: Male

DRUGS (7)
  1. ATORVASTATIN [Suspect]
     Active Substance: ATORVASTATIN
     Indication: Acute coronary syndrome
     Dosage: 40MG/DAY
     Route: 048
     Dates: start: 202211, end: 20221203
  2. COLCHICINE [Suspect]
     Active Substance: COLCHICINE
     Indication: Acute coronary syndrome
     Dosage: 1/2 CAP OF 1 MG IN THE MORNING + 1 FULL CAP OF 1 MG IN THE EVENING
     Route: 048
     Dates: start: 20221104, end: 20221203
  3. TICAGRELOR [Concomitant]
     Active Substance: TICAGRELOR
     Indication: Ischaemic heart disease prophylaxis
     Dosage: 90MG/BID
     Route: 048
  4. ASPIRIN [Concomitant]
     Active Substance: ASPIRIN
     Indication: Ischaemic heart disease prophylaxis
     Dosage: 100MG/DAY
     Route: 048
  5. RAMIPRIL [Concomitant]
     Active Substance: RAMIPRIL
     Indication: Hypertension
     Dosage: 2.5MG/DAY
     Route: 048
  6. CHOLECALCIFEROL [Concomitant]
     Active Substance: CHOLECALCIFEROL
     Indication: Osteoporosis prophylaxis
     Dosage: 50,000/WEEK
     Route: 048
  7. NITROGLYCERIN [Concomitant]
     Active Substance: NITROGLYCERIN
     Indication: Ischaemic heart disease prophylaxis
     Dosage: 10MG/DAY TO BE APPLIED BETWEEN 8.00PM AND 8.00AM
     Route: 062

REACTIONS (4)
  - Muscle necrosis [Recovered/Resolved]
  - Asthenia [Recovered/Resolved]
  - Gait disturbance [Recovered/Resolved]
  - Myalgia [Recovered/Resolved]

NARRATIVE: CASE EVENT DATE: 20221101
